FAERS Safety Report 16364986 (Version 5)
Quarter: 2019Q3

REPORT INFORMATION
  Report Type: Spontaneous
  Country: JP (occurrence: JP)
  Receive Date: 20190529
  Receipt Date: 20190729
  Transmission Date: 20191004
  Serious: Yes (Hospitalization, Other)
  Sender: FDA-Public Use
  Company Number: JP-PFIZER INC-2019227294

PATIENT
  Age: 85 Year
  Sex: Female
  Weight: 37 kg

DRUGS (15)
  1. BELSOMRA [Concomitant]
     Active Substance: SUVOREXANT
     Indication: INSOMNIA
     Dosage: 15 MG, 1X/DAY
     Route: 048
     Dates: start: 20190119
  2. VOGLIBOSE [Concomitant]
     Active Substance: VOGLIBOSE
     Dosage: 0.3 MG, 3X/DAY
     Route: 048
     Dates: start: 20190109
  3. REBAMIPIDE [Concomitant]
     Active Substance: REBAMIPIDE
     Dosage: UNK
     Route: 065
  4. CELECOX [Suspect]
     Active Substance: CELECOXIB
     Indication: BACK PAIN
     Dosage: UNK UNK, UNKNOWN FREQ.
     Route: 065
  5. BIOFERMIN [BACILLUS SUBTILIS;ENTEROCOCCUS FAECALIS;LACTOBACILLUS ACIDO [Concomitant]
     Indication: CONSTIPATION
     Dosage: 1 G, 2X/DAY (ONCE EVERY 12 HOURS)
     Route: 048
     Dates: start: 20100109
  6. VOGLIBOSE [Concomitant]
     Active Substance: VOGLIBOSE
     Dosage: UNK, UNKNOWN FREQ.
     Route: 065
     Dates: start: 20100109
  7. AMLODIPINE [Concomitant]
     Active Substance: AMLODIPINE BESYLATE
     Indication: HYPERTENSION
     Dosage: 5 MG, 1X/DAY
     Route: 048
     Dates: start: 20100109
  8. ARIMIDEX [Concomitant]
     Active Substance: ANASTROZOLE
     Dosage: 1 MG/DAY, UNKNOWN FREQ.
     Route: 048
  9. CELECOX [Suspect]
     Active Substance: CELECOXIB
     Indication: OSTEOARTHRITIS
     Dosage: 100 MG, 2X/DAY (ONCE EVERY 12 HOURS)
     Route: 048
     Dates: start: 20130511
  10. ALFACALCIDOL [Concomitant]
     Active Substance: ALFACALCIDOL
     Indication: OSTEOPOROSIS
     Dosage: 0.5 UG, ONCE DAILY
     Route: 048
     Dates: start: 20190427
  11. MUCOSTA [Concomitant]
     Active Substance: REBAMIPIDE
     Indication: OSTEOARTHRITIS
     Dosage: 100 MG, 2X/DAY (ONCE EVERY 12 HOURS)
     Route: 048
     Dates: start: 20130511
  12. RABEPRAZOLE [Concomitant]
     Active Substance: RABEPRAZOLE
     Indication: GASTROOESOPHAGEAL REFLUX DISEASE
     Dosage: 10 MG, 1X/DAY
     Route: 048
     Dates: start: 20190428
  13. EVENITY [Suspect]
     Active Substance: ROMOSOZUMAB-AQQG
     Indication: OSTEOPOROSIS
     Dosage: 210 MG, 1X/DAY
     Route: 058
     Dates: start: 20190425
  14. BIOFERMIN [BACILLUS SUBTILIS;ENTEROCOCCUS FAECALIS;LACTOBACILLUS ACIDO [Concomitant]
     Indication: CONSTIPATION
     Dosage: 1 DF, 2X/DAY (ONCE EVERY 12 HOURS)
     Route: 048
     Dates: start: 20190428
  15. VOGLIBOSE [Concomitant]
     Active Substance: VOGLIBOSE
     Indication: DIABETES MELLITUS
     Dosage: UNK, UNKNOWN FREQ.
     Route: 065

REACTIONS (3)
  - Cerebellar haemorrhage [Recovering/Resolving]
  - Nausea [Recovering/Resolving]
  - Fall [Recovered/Resolved]

NARRATIVE: CASE EVENT DATE: 20190429
